FAERS Safety Report 13471892 (Version 3)
Quarter: 2017Q3

REPORT INFORMATION
  Report Type: Spontaneous
  Country: US (occurrence: US)
  Receive Date: 20170424
  Receipt Date: 20170724
  Transmission Date: 20171127
  Serious: No
  Sender: FDA-Public Use
  Company Number: US-PFIZER INC-2017174923

PATIENT
  Age: 49 Year
  Sex: Female
  Weight: 83.91 kg

DRUGS (6)
  1. TUMS [Concomitant]
     Active Substance: CALCIUM CARBONATE
     Dosage: UNK
     Dates: end: 201706
  2. CENTRUM SILVER +50 [Concomitant]
     Dosage: UNK, DAILY (EVERY MORNING)
  3. CHANTIX [Suspect]
     Active Substance: VARENICLINE TARTRATE
     Dosage: 10 MG, 2X/DAY
     Dates: start: 20161009
  4. LOSARTAN. [Concomitant]
     Active Substance: LOSARTAN
     Indication: BLOOD PRESSURE ABNORMAL
     Dosage: 100/25 MG, 1X/DAY IN HE MORNING
  5. TUMS [Concomitant]
     Active Substance: CALCIUM CARBONATE
     Dosage: UNK (EVERY NIGHT
     Dates: end: 20170127
  6. CHANTIX [Suspect]
     Active Substance: VARENICLINE TARTRATE
     Indication: SMOKING CESSATION THERAPY
     Dosage: ONE A DAY
     Dates: start: 201610, end: 20170104

REACTIONS (4)
  - Tinnitus [Not Recovered/Not Resolved]
  - Insomnia [Recovered/Resolved]
  - Ear discomfort [Not Recovered/Not Resolved]
  - Overdose [Recovered/Resolved]

NARRATIVE: CASE EVENT DATE: 20161009
